FAERS Safety Report 17894151 (Version 1)
Quarter: 2020Q2

REPORT INFORMATION
  Report Type: Spontaneous
  Country: US (occurrence: US)
  Receive Date: 20200615
  Receipt Date: 20200615
  Transmission Date: 20200714
  Serious: Yes (Life-Threatening, Hospitalization, Other)
  Sender: FDA-Public Use
  Company Number: US-AUROBINDO-AUR-APL-2020-028573

PATIENT
  Age: 55 Year
  Sex: Male

DRUGS (2)
  1. OXYCODONE HYDROCHLORIDE TABLETS USP 30 MG [Suspect]
     Active Substance: OXYCODONE HYDROCHLORIDE
     Indication: BACK PAIN
     Dosage: 24 DOSAGE FORM
     Route: 048
  2. OXYGEN. [Concomitant]
     Active Substance: OXYGEN
     Indication: CHRONIC OBSTRUCTIVE PULMONARY DISEASE
     Route: 065

REACTIONS (8)
  - Hypotension [Recovering/Resolving]
  - Accidental overdose [Recovered/Resolved]
  - Multiple organ dysfunction syndrome [Recovering/Resolving]
  - Myelitis transverse [Recovering/Resolving]
  - Shock [Recovering/Resolving]
  - Spinal cord ischaemia [Recovering/Resolving]
  - Acute respiratory failure [Recovering/Resolving]
  - Myelopathy [Recovering/Resolving]
